FAERS Safety Report 10382899 (Version 1)
Quarter: 2014Q3

REPORT INFORMATION
  Report Type: Spontaneous
  Country: US (occurrence: US)
  Receive Date: 20140813
  Receipt Date: 20140813
  Transmission Date: 20150326
  Serious: No
  Sender: FDA-Public Use
  Company Number: US-SA-2014SA022271

PATIENT
  Age: 65 Year
  Sex: Male

DRUGS (20)
  1. FABRAZYME [Suspect]
     Active Substance: AGALSIDASE BETA
     Indication: FABRY^S DISEASE
     Route: 042
     Dates: start: 20131101
  2. ACETAMINOPHEN. [Concomitant]
     Active Substance: ACETAMINOPHEN
  3. NORMAL SALINE [Concomitant]
     Active Substance: SODIUM CHLORIDE
  4. LIPITOR [Concomitant]
     Active Substance: ATORVASTATIN CALCIUM
  5. LOVAZA [Concomitant]
     Active Substance: OMEGA-3-ACID ETHYL ESTERS
  6. WATER. [Concomitant]
     Active Substance: WATER
  7. ASPIRIN. [Concomitant]
     Active Substance: ASPIRIN
  8. WARFARIN [Concomitant]
     Active Substance: WARFARIN
  9. DIPHENHYDRAMINE [Concomitant]
     Active Substance: DIPHENHYDRAMINE
  10. AMIODARONE [Concomitant]
     Active Substance: AMIODARONE
  11. SODIUM CHLORIDE. [Concomitant]
     Active Substance: SODIUM CHLORIDE
  12. DIOVAN [Concomitant]
     Active Substance: VALSARTAN
  13. LEVOTHYROXINE [Concomitant]
     Active Substance: LEVOTHYROXINE
  14. COENZYME Q10 [Concomitant]
     Active Substance: UBIDECARENONE
  15. LISINOPRIL. [Concomitant]
     Active Substance: LISINOPRIL
  16. EPIPEN [Concomitant]
     Active Substance: EPINEPHRINE
  17. CALCIUM/VITAMIN D [Concomitant]
     Active Substance: CALCIUM\VITAMIN D
  18. FABRAZYME [Suspect]
     Active Substance: AGALSIDASE BETA
     Indication: FABRY^S DISEASE
     Route: 042
     Dates: start: 20131101
  19. ALLOPURINOL. [Concomitant]
     Active Substance: ALLOPURINOL
  20. VITAMIN D [Concomitant]
     Active Substance: CHOLECALCIFEROL

REACTIONS (1)
  - Upper respiratory tract infection [Unknown]
